FAERS Safety Report 4937347-6 (Version None)
Quarter: 2006Q1

REPORT INFORMATION
  Report Type: 
  Country: None (occurrence: None)
  Receive Date: 20060306
  Receipt Date: 20060221
  Transmission Date: 20060701
  Serious: Yes (Hospitalization, Other)
  Sender: FDA-Public Use
  Company Number: 2005127204

PATIENT
  Age: 58 Year
  Sex: Female
  Weight: 59.7841 kg

DRUGS (14)
  1. SUTENT [Suspect]
     Indication: RENAL CELL CARCINOMA STAGE UNSPECIFIED
     Dosage: 50 MG (50 MG, 1 IN 1 D), ORAL
     Route: 048
     Dates: start: 20050427, end: 20050927
  2. PEPCID [Concomitant]
  3. FOSAMAX [Concomitant]
  4. AREDIA [Concomitant]
  5. COMPAZINE [Concomitant]
  6. VICODIN [Concomitant]
  7. COLACE (DOCUSATE SODIUM) [Concomitant]
  8. LOPRESSOR [Concomitant]
  9. HYCODAN [Concomitant]
  10. MORPHINE SULFATE [Concomitant]
  11. LASIX [Concomitant]
  12. ALDACTONE [Concomitant]
  13. ATIVAN [Concomitant]
  14. NEURONTIN [Concomitant]

REACTIONS (9)
  - ADRENAL INSUFFICIENCY [None]
  - ANAEMIA [None]
  - ASCITES [None]
  - ASTHENIA [None]
  - DEEP VEIN THROMBOSIS [None]
  - DEHYDRATION [None]
  - MALIGNANT NEOPLASM PROGRESSION [None]
  - PLEURAL EFFUSION [None]
  - VENTRICULAR DYSFUNCTION [None]
